FAERS Safety Report 8515697-4 (Version None)
Quarter: 2012Q3

REPORT INFORMATION
  Report Type: 
  Country: None (occurrence: None)
  Receive Date: 20120717
  Receipt Date: 20120713
  Transmission Date: 20120928
  Serious: Yes (Death)
  Sender: FDA-Public Use
  Company Number: PHHY2012ZW039432

PATIENT
  Sex: Male

DRUGS (1)
  1. IMATINIB MESYLATE [Suspect]
     Indication: DERMATOFIBROSARCOMA
     Dosage: 800 MG, DAILY
     Dates: start: 20111027

REACTIONS (2)
  - DEATH [None]
  - VOMITING [None]
